FAERS Safety Report 8828087 (Version 1)
Quarter: 2012Q4

REPORT INFORMATION
  Report Type: 
  Country: CN (occurrence: CN)
  Receive Date: 20121005
  Receipt Date: 20121005
  Transmission Date: 20130627
  Serious: Yes (Hospitalization)
  Sender: FDA-Public Use
  Company Number: CN-JNJFOC-20120912710

PATIENT
  Sex: Female

DRUGS (8)
  1. TYLENOL COLD [Suspect]
     Indication: PRODUCT USED FOR UNKNOWN INDICATION
     Route: 048
     Dates: start: 20090306
  2. TYLENOL COLD [Suspect]
     Indication: PRODUCT USED FOR UNKNOWN INDICATION
     Route: 048
     Dates: start: 20090303, end: 20090305
  3. TYLENOL COLD [Suspect]
     Indication: PYREXIA
     Route: 048
     Dates: start: 20090306
  4. TYLENOL COLD [Suspect]
     Indication: PYREXIA
     Route: 048
     Dates: start: 20090303, end: 20090305
  5. TYLENOL COLD [Suspect]
     Indication: COUGH
     Route: 048
     Dates: start: 20090306
  6. TYLENOL COLD [Suspect]
     Indication: COUGH
     Route: 048
     Dates: start: 20090303, end: 20090305
  7. TYLENOL COLD [Suspect]
     Indication: NASOPHARYNGITIS
     Route: 048
     Dates: start: 20090306
  8. TYLENOL COLD [Suspect]
     Indication: NASOPHARYNGITIS
     Route: 048
     Dates: start: 20090303, end: 20090305

REACTIONS (1)
  - Urticaria [Recovered/Resolved]
